FAERS Safety Report 7320501-6 (Version None)
Quarter: 2011Q1

REPORT INFORMATION
  Report Type: 
  Country: None (occurrence: None)
  Receive Date: 20110228
  Receipt Date: 20110218
  Transmission Date: 20110831
  Serious: Yes (Other)
  Sender: FDA-Public Use
  Company Number: IT-BRISTOL-MYERS SQUIBB COMPANY-15535149

PATIENT
  Age: 57 Year
  Sex: Male

DRUGS (2)
  1. REYATAZ [Suspect]
     Dosage: 1DF:400 * 2MG; STARTED ABOUT ONE YEAR AGO
     Dates: start: 20100101
  2. ISENTRESS [Suspect]

REACTIONS (6)
  - PYREXIA [None]
  - THROMBOPHLEBITIS [None]
  - ANAEMIA [None]
  - MALAISE [None]
  - JAUNDICE [None]
  - CHOLELITHIASIS [None]
